FAERS Safety Report 13453306 (Version 2)
Quarter: 2017Q2

REPORT INFORMATION
  Report Type: Spontaneous
  Country: US (occurrence: US)
  Receive Date: 20170418
  Receipt Date: 20170507
  Transmission Date: 20170830
  Serious: Yes (Hospitalization)
  Sender: FDA-Public Use
  Company Number: US-TEVA-760817USA

PATIENT
  Age: 16 Year
  Sex: Male
  Weight: 44 kg

DRUGS (8)
  1. PIPERACILLIN [Concomitant]
     Active Substance: PIPERACILLIN
     Indication: PNEUMONIA
     Route: 065
  2. TAZOBACTAM [Concomitant]
     Active Substance: TAZOBACTAM
     Indication: PNEUMONIA
     Route: 042
  3. CIPROFLOXACIN. [Concomitant]
     Active Substance: CIPROFLOXACIN
     Indication: PNEUMONIA
     Dosage: RENAL DOSE
     Route: 042
  4. LINEZOLID. [Concomitant]
     Active Substance: LINEZOLID
     Indication: PNEUMONIA
     Route: 042
  5. BACLOFEN. [Suspect]
     Active Substance: BACLOFEN
     Indication: CEREBRAL PALSY
     Route: 065
  6. NAPROXEN. [Concomitant]
     Active Substance: NAPROXEN
     Indication: PROCEDURAL PAIN
     Dosage: FOR 2MONTHS
     Route: 065
  7. CEFTAZIDIME. [Concomitant]
     Active Substance: CEFTAZIDIME
     Indication: PNEUMONIA
     Route: 065
  8. VANCOMYCIN [Suspect]
     Active Substance: VANCOMYCIN
     Indication: PNEUMONIA
     Route: 065

REACTIONS (10)
  - Coma [Recovered/Resolved]
  - Heart rate decreased [Recovered/Resolved]
  - Leukocytosis [Recovered/Resolved]
  - Respiratory rate decreased [Recovered/Resolved]
  - Toxicity to various agents [Recovered/Resolved]
  - Pyrexia [Recovered/Resolved]
  - Acute kidney injury [Recovered/Resolved]
  - Hypotension [Recovered/Resolved]
  - Mental impairment [Recovered/Resolved]
  - Condition aggravated [Recovered/Resolved]
